FAERS Safety Report 9022484 (Version 1)
Quarter: 2013Q1

REPORT INFORMATION
  Report Type: Spontaneous
  Country: US (occurrence: US)
  Receive Date: 20130118
  Receipt Date: 20130118
  Transmission Date: 20140127
  Serious: No
  Sender: FDA-Public Use
  Company Number: US-BAYER-2013-002190

PATIENT
  Sex: Female

DRUGS (1)
  1. BETASERON [Suspect]
     Indication: MULTIPLE SCLEROSIS
     Dosage: 0.25 MG, QOD
     Route: 058

REACTIONS (4)
  - Musculoskeletal stiffness [Unknown]
  - Paraesthesia [Unknown]
  - Hypoaesthesia [Unknown]
  - Pain in extremity [Unknown]
